FAERS Safety Report 10867060 (Version 1)
Quarter: 2015Q1

REPORT INFORMATION
  Report Type: Spontaneous
  Country: US (occurrence: US)
  Receive Date: 20150225
  Receipt Date: 20150225
  Transmission Date: 20150721
  Serious: No
  Sender: FDA-Public Use
  Company Number: US-JNJFOC-20150210405

PATIENT
  Sex: Male
  Weight: 77.11 kg

DRUGS (3)
  1. GABAPENTIN. [Concomitant]
     Active Substance: GABAPENTIN
     Route: 048
  2. FENTANYL TRANSDERMAL SYSTEM [Suspect]
     Active Substance: FENTANYL
     Indication: PRODUCT USED FOR UNKNOWN INDICATION
     Route: 062
     Dates: start: 2007
  3. CLONAZEPAM. [Concomitant]
     Active Substance: CLONAZEPAM
     Dosage: 1-2 DOSES TWO TO THREE TIMES A DAY
     Route: 048

REACTIONS (4)
  - Product adhesion issue [Unknown]
  - Poor quality drug administered [Unknown]
  - Therapeutic response decreased [Unknown]
  - Product packaging issue [Unknown]
